FAERS Safety Report 5678291-9 (Version None)
Quarter: 2008Q1

REPORT INFORMATION
  Report Type: 
  Country: None (occurrence: None)
  Receive Date: 20080324
  Receipt Date: 20080324
  Transmission Date: 20080703
  Serious: Yes (Hospitalization, Other)
  Sender: FDA-Public Use
  Company Number: None

PATIENT
  Age: 60 Year
  Sex: Male
  Weight: 90.7194 kg

DRUGS (1)
  1. LEVAQUIN [Suspect]
     Indication: PNEUMONIA
     Dosage: 750 MG ONE PER DAY PO
     Route: 048
     Dates: start: 20071223, end: 20080102

REACTIONS (3)
  - ANXIETY [None]
  - INSOMNIA [None]
  - PANIC ATTACK [None]
